FAERS Safety Report 8093361-6 (Version None)
Quarter: 2012Q1

REPORT INFORMATION
  Report Type: 
  Country: None (occurrence: None)
  Receive Date: 20120131
  Receipt Date: 20120125
  Transmission Date: 20120608
  Serious: Yes (Death, Other)
  Sender: FDA-Public Use
  Company Number: JP-PFIZER INC-2011219026

PATIENT
  Age: 72 Year
  Sex: Male

DRUGS (5)
  1. REBAMIPIDE [Concomitant]
     Indication: PROPHYLAXIS
     Dosage: UNK
     Route: 048
     Dates: end: 20110620
  2. SENNOSIDE A+B [Concomitant]
     Indication: RENAL CELL CARCINOMA
     Dosage: 24 MG, 1X/DAY
     Route: 048
     Dates: end: 20110613
  3. NAPROXEN [Concomitant]
     Indication: RENAL CELL CARCINOMA
     Dosage: UNK
     Route: 048
     Dates: end: 20110629
  4. TEMSIROLIMUS [Suspect]
     Indication: RENAL CELL CARCINOMA
     Dosage: UNK
     Route: 041
     Dates: start: 20110303, end: 20110523
  5. TRAMADOL HYDROCHLORIDE [Concomitant]
     Indication: RENAL CELL CARCINOMA
     Dosage: UNK

REACTIONS (5)
  - RENAL CELL CARCINOMA [None]
  - INTERSTITIAL LUNG DISEASE [None]
  - MALNUTRITION [None]
  - DEPRESSED LEVEL OF CONSCIOUSNESS [None]
  - DISEASE PROGRESSION [None]
